FAERS Safety Report 21077724 (Version 6)
Quarter: 2023Q4

REPORT INFORMATION
  Report Type: Spontaneous
  Country: US (occurrence: US)
  Receive Date: 20220713
  Receipt Date: 20231218
  Transmission Date: 20240110
  Serious: No
  Sender: FDA-Public Use
  Company Number: US-PFIZER INC-PV202200020540

PATIENT
  Age: 73 Year
  Sex: Male

DRUGS (1)
  1. BOSULIF [Suspect]
     Active Substance: BOSUTINIB MONOHYDRATE
     Indication: Chronic myeloid leukaemia
     Dosage: 400 MG, 1X/DAY (EVERYDAY)
     Route: 048

REACTIONS (3)
  - White blood cell count increased [Unknown]
  - Basophilia [Unknown]
  - Hyperlipidaemia [Unknown]
